FAERS Safety Report 23078849 (Version 1)
Quarter: 2023Q4

REPORT INFORMATION
  Report Type: Report from Study
  Country: US (occurrence: US)
  Receive Date: 20231018
  Receipt Date: 20231018
  Transmission Date: 20240109
  Serious: Yes (Other)
  Sender: FDA-Public Use
  Company Number: US-UCBSA-2023049732

PATIENT
  Sex: Female

DRUGS (1)
  1. MIDAZOLAM [Suspect]
     Active Substance: MIDAZOLAM
     Indication: Seizure
     Dosage: 5MG SPRAY INTO ONE NOSTRIL REPEAT AFTER 10MIN IF NEED
     Route: 045

REACTIONS (4)
  - Hallucination [Unknown]
  - Somnolence [Unknown]
  - Head discomfort [Unknown]
  - Hypersensitivity [Unknown]
